FAERS Safety Report 25282108 (Version 1)
Quarter: 2025Q2

REPORT INFORMATION
  Report Type: Spontaneous
  Country: GB (occurrence: GB)
  Receive Date: 20250508
  Receipt Date: 20250508
  Transmission Date: 20250716
  Serious: Yes (Hospitalization, Other)
  Sender: ADVANZ PHARMA
  Company Number: None

PATIENT

DRUGS (18)
  1. PREDNISOLONE [Suspect]
     Active Substance: PREDNISOLONE
     Dates: start: 20250120, end: 20250125
  2. EDOXABAN [Suspect]
     Active Substance: EDOXABAN
     Dates: end: 20250125
  3. CALCIUM CARBONATE\CHOLECALCIFEROL [Concomitant]
     Active Substance: CALCIUM CARBONATE\CHOLECALCIFEROL
  4. AMLODIPINE [Concomitant]
     Active Substance: AMLODIPINE BESYLATE
  5. ATORVASTATIN [Concomitant]
     Active Substance: ATORVASTATIN
  6. DOXAZOSIN [Concomitant]
     Active Substance: DOXAZOSIN MESYLATE
  7. FAMOTIDINE [Concomitant]
     Active Substance: FAMOTIDINE
  8. FLUPENTIXOL [Concomitant]
     Active Substance: FLUPENTIXOL
  9. FYBOGEL [Concomitant]
     Active Substance: HERBALS\PLANTAGO OVATA SEED
  10. LOSARTAN [Concomitant]
     Active Substance: LOSARTAN
  11. LYMECYCLINE [Concomitant]
     Active Substance: LYMECYCLINE
  12. MIRTAZAPINE [Concomitant]
     Active Substance: MIRTAZAPINE
  13. DILTIAZEM [Concomitant]
     Active Substance: DILTIAZEM
  14. BECLOMETHASONE [Concomitant]
     Active Substance: BECLOMETHASONE
  15. ALBUTEROL [Concomitant]
     Active Substance: ALBUTEROL
  16. AMOXICILLIN [Concomitant]
     Active Substance: AMOXICILLIN
  17. COCODAMOL [Concomitant]
     Active Substance: ACETAMINOPHEN\CODEINE PHOSPHATE
  18. FERROUS SULFATE [Concomitant]
     Active Substance: FERROUS SULFATE

REACTIONS (1)
  - Upper gastrointestinal haemorrhage [Recovering/Resolving]

NARRATIVE: CASE EVENT DATE: 20250125
